FAERS Safety Report 4280802-5 (Version None)
Quarter: 2004Q1

REPORT INFORMATION
  Report Type: 
  Country: None (occurrence: None)
  Receive Date: 20040127
  Receipt Date: 20040116
  Transmission Date: 20041129
  Serious: No
  Sender: FDA-Public Use
  Company Number: 163-20785-03120498(1)

PATIENT
  Age: 59 Year
  Sex: Female
  Weight: 95.709 kg

DRUGS (14)
  1. THALOMID [Suspect]
     Indication: FOLLICULAR THYROID CANCER
     Dosage: 400-800 MG, QD, ORAL;  500 MG, DAILY, ORAL;  400 MG, DAILY, ORAL
     Route: 048
     Dates: start: 20021001, end: 20030101
  2. THALOMID [Suspect]
     Indication: FOLLICULAR THYROID CANCER
     Dosage: 400-800 MG, QD, ORAL;  500 MG, DAILY, ORAL;  400 MG, DAILY, ORAL
     Route: 048
     Dates: start: 20031205, end: 20031209
  3. THALOMID [Suspect]
     Indication: FOLLICULAR THYROID CANCER
     Dosage: 400-800 MG, QD, ORAL;  500 MG, DAILY, ORAL;  400 MG, DAILY, ORAL
     Route: 048
     Dates: start: 20031201
  4. WELLBUTRIN [Suspect]
     Dates: start: 20031203, end: 20031201
  5. COZAAR [Suspect]
     Dates: start: 20031203, end: 20031201
  6. ALPRAZOLAM [Concomitant]
  7. NIFEDIPINE [Concomitant]
  8. SYNTHROID [Concomitant]
  9. CALCITRIOL [Concomitant]
  10. PEPCID [Concomitant]
  11. SLO-MAG (MAGNESIUM CHLORIDE ANHYDROUS) [Concomitant]
  12. K-DUR 10 [Concomitant]
  13. FLUVOXAMINE MALEATE [Concomitant]
  14. AVALIDE [Concomitant]

REACTIONS (8)
  - ABDOMINAL DISTENSION [None]
  - CONDITION AGGRAVATED [None]
  - FOLLICULAR THYROID CANCER [None]
  - OEDEMA PERIPHERAL [None]
  - OROPHARYNGEAL SWELLING [None]
  - RASH PRURITIC [None]
  - THYROGLOBULIN INCREASED [None]
  - WHITE BLOOD CELL COUNT DECREASED [None]
